FAERS Safety Report 8569908-X (Version None)
Quarter: 2012Q3

REPORT INFORMATION
  Report Type: 
  Country: None (occurrence: None)
  Receive Date: 20120803
  Receipt Date: 20120330
  Transmission Date: 20120928
  Serious: No
  Sender: FDA-Public Use
  Company Number: US-ABBOTT-12P-163-0920159-00

PATIENT
  Sex: Male
  Weight: 74.91 kg

DRUGS (3)
  1. ASPIRIN [Concomitant]
     Indication: PRODUCT USED FOR UNKNOWN INDICATION
  2. NIASPAN [Suspect]
     Indication: BLOOD CHOLESTEROL
     Dosage: IN AM WITH CHEERIOS
     Dates: start: 20110101
  3. NIASPAN [Suspect]
     Dosage: IN AM WITH CHEERIOS
     Dates: start: 20100101, end: 20100101

REACTIONS (3)
  - FLUSHING [None]
  - ERYTHEMA [None]
  - MEDICATION RESIDUE [None]
